FAERS Safety Report 18556558 (Version 1)
Quarter: 2020Q4

REPORT INFORMATION
  Report Type: Report from Study
  Country: US (occurrence: US)
  Receive Date: 20201128
  Receipt Date: 20201128
  Transmission Date: 20210114
  Serious: Yes (Other)
  Sender: FDA-Public Use
  Company Number: US-SHIRE-US201919431

PATIENT
  Age: 47 Year
  Sex: Female

DRUGS (3)
  1. HUMAN NORMAL IMMUNOGLOBULIN; LIQUID 20 [Suspect]
     Active Substance: HUMAN IMMUNOGLOBULIN G
     Indication: PRIMARY IMMUNODEFICIENCY SYNDROME
     Dosage: 10 GRAM
     Route: 065
  2. HUMAN NORMAL IMMUNOGLOBULIN; LIQUID 20 [Suspect]
     Active Substance: HUMAN IMMUNOGLOBULIN G
     Indication: SELECTIVE IGG SUBCLASS DEFICIENCY
  3. HYQVIA [Suspect]
     Active Substance: HUMAN IMMUNOGLOBULIN G\HYALURONIDASE RECOMBINANT HUMAN
     Indication: PRIMARY IMMUNODEFICIENCY SYNDROME
     Dosage: 65 GRAM, EVERY 3 WK
     Route: 065

REACTIONS (11)
  - Viral infection [Unknown]
  - Arthralgia [Recovering/Resolving]
  - Alopecia [Unknown]
  - Malaise [Recovering/Resolving]
  - Gastrointestinal disorder [Recovering/Resolving]
  - Bronchitis [Unknown]
  - Upper respiratory tract infection [Unknown]
  - Drug ineffective [Unknown]
  - Product dose omission issue [Unknown]
  - Infection parasitic [Recovering/Resolving]
  - Inability to afford medication [Unknown]

NARRATIVE: CASE EVENT DATE: 20190613
